FAERS Safety Report 17948358 (Version 7)
Quarter: 2022Q1

REPORT INFORMATION
  Report Type: Spontaneous
  Country: CA (occurrence: CA)
  Receive Date: 20200625
  Receipt Date: 20220330
  Transmission Date: 20220423
  Serious: Yes (Hospitalization, Other)
  Sender: FDA-Public Use
  Company Number: CA-HRARD-202000495

PATIENT
  Age: 37 Year
  Sex: Female

DRUGS (13)
  1. LYSODREN [Suspect]
     Active Substance: MITOTANE
     Indication: Adrenal gland cancer
     Dosage: 1G IN THE MORNING, 1G AT LUNCH,  1.5G AT SUPPER AND 1.5G AT BEDTIME
     Dates: start: 20200221, end: 20200608
  2. LYSODREN [Suspect]
     Active Substance: MITOTANE
     Indication: Adrenal gland cancer
     Dosage: 1G IN THE MORNING, 1G IN THE AFTERNOON,  2G IN THE EVENING AND 2G IN THE NIGHT
     Dates: start: 20201009, end: 202111
  3. LYSODREN [Suspect]
     Active Substance: MITOTANE
     Indication: Adrenal gland cancer
     Dosage: 7 TABLETS PER DAY
     Dates: start: 202111, end: 202201
  4. LYSODREN [Suspect]
     Active Substance: MITOTANE
     Indication: Adrenal gland cancer
     Dosage: 6 TABLETS PER DAY
     Dates: start: 202201
  5. CORTEF [Concomitant]
     Active Substance: HYDROCORTISONE
     Indication: Adrenal insufficiency
     Dosage: 20MG /10MG
     Route: 048
     Dates: start: 201912, end: 20200608
  6. CORTEF [Concomitant]
     Active Substance: HYDROCORTISONE
     Indication: Adrenal insufficiency
     Dosage: 20MG /10MG / 10MG
     Route: 048
     Dates: start: 20200608
  7. CORTEF [Concomitant]
     Active Substance: HYDROCORTISONE
     Indication: Adrenal insufficiency
     Dosage: 30MG / 20MG /10MG
     Route: 048
     Dates: start: 2022
  8. Florined 0.3 mg [Concomitant]
     Indication: Product used for unknown indication
  9. Synthroid 137 [Concomitant]
     Indication: Product used for unknown indication
  10. Crestor 30 [Concomitant]
     Indication: Product used for unknown indication
  11. CYMBALTA [Concomitant]
     Active Substance: DULOXETINE HYDROCHLORIDE
     Indication: Product used for unknown indication
  12. LYRICA [Concomitant]
     Active Substance: PREGABALIN
     Indication: Product used for unknown indication
  13. KYLEENA [Concomitant]
     Active Substance: LEVONORGESTREL
     Indication: Product used for unknown indication

REACTIONS (6)
  - Pyelonephritis [Recovered/Resolved]
  - Septic shock [Recovered/Resolved]
  - Coma [Recovered/Resolved]
  - Renal failure [Recovered/Resolved]
  - Toxic shock syndrome [Unknown]
  - Hepatic enzyme increased [Recovered/Resolved]

NARRATIVE: CASE EVENT DATE: 20200520
